FAERS Safety Report 8544651-1 (Version None)
Quarter: 2012Q2

REPORT INFORMATION
  Report Type: 
  Country: None (occurrence: None)
  Receive Date: 20120416
  Receipt Date: 20100311
  Transmission Date: 20120825
  Serious: Yes (Other)
  Sender: FDA-Public Use
  Company Number: PHHY2010US15663

PATIENT
  Sex: Male

DRUGS (2)
  1. TEKTURNA [Suspect]
  2. DIOVAN [Suspect]

REACTIONS (1)
  - HYPERKALAEMIA [None]
